FAERS Safety Report 13050814 (Version 1)
Quarter: 2016Q4

REPORT INFORMATION
  Report Type: Spontaneous
  Country: US (occurrence: US)
  Receive Date: 20161221
  Receipt Date: 20161221
  Transmission Date: 20170207
  Serious: Yes (Hospitalization)
  Sender: FDA-Public Use
  Company Number: US-NOVOPROD-513565

PATIENT
  Age: 58 Year
  Sex: Male
  Weight: 131.52 kg

DRUGS (4)
  1. LEVEMIR [Suspect]
     Active Substance: INSULIN DETEMIR
     Dosage: 70 U AT NIGHT
     Route: 058
     Dates: start: 20160125, end: 20160125
  2. LEVEMIR [Suspect]
     Active Substance: INSULIN DETEMIR
     Indication: TYPE 2 DIABETES MELLITUS
     Dosage: 70 U AT NIGHT
     Route: 058
     Dates: start: 20101111, end: 20160122
  3. ISOSORBIDE. [Concomitant]
     Active Substance: ISOSORBIDE
     Indication: PRODUCT USED FOR UNKNOWN INDICATION
  4. LEVEMIR [Suspect]
     Active Substance: INSULIN DETEMIR
     Dosage: 70 U AT NIGHT
     Route: 058
     Dates: start: 20160131, end: 20160217

REACTIONS (2)
  - Abdominal pain upper [Recovered/Resolved]
  - Weight increased [Not Recovered/Not Resolved]

NARRATIVE: CASE EVENT DATE: 20160102
